FAERS Safety Report 14709468 (Version 1)
Quarter: 2018Q2

REPORT INFORMATION
  Report Type: Spontaneous
  Country: IR (occurrence: IR)
  Receive Date: 20180403
  Receipt Date: 20180403
  Transmission Date: 20180711
  Serious: Yes (Other)
  Sender: FDA-Public Use
  Company Number: PHHY2018IR048970

PATIENT
  Age: 29 Year
  Sex: Male

DRUGS (2)
  1. ZOLPIDEM [Suspect]
     Active Substance: ZOLPIDEM\ZOLPIDEM TARTRATE
     Dosage: 6 DF (60 MG)
     Route: 065
  2. ZOLPIDEM [Suspect]
     Active Substance: ZOLPIDEM\ZOLPIDEM TARTRATE
     Indication: INSOMNIA
     Dosage: UNK
     Route: 065

REACTIONS (19)
  - Headache [Unknown]
  - Constipation [Unknown]
  - Abdominal pain [Unknown]
  - Hallucination, visual [Unknown]
  - Dysgeusia [Unknown]
  - Vision blurred [Unknown]
  - Drug abuse [Unknown]
  - Hangover [Unknown]
  - Dyspepsia [Unknown]
  - Nausea [Unknown]
  - Abdominal pain upper [Unknown]
  - Fatigue [Unknown]
  - Sneezing [Unknown]
  - Nasal odour [Unknown]
  - Dizziness [Unknown]
  - Diarrhoea [Unknown]
  - Balance disorder [Unknown]
  - Vomiting [Unknown]
  - Nightmare [Unknown]
